FAERS Safety Report 6292003-X (Version None)
Quarter: 2009Q3

REPORT INFORMATION
  Report Type: 
  Country: None (occurrence: None)
  Receive Date: 20090729
  Receipt Date: 20090708
  Transmission Date: 20100115
  Serious: Yes (Hospitalization)
  Sender: FDA-Public Use
  Company Number: 8049372

PATIENT
  Age: 48 Year
  Sex: Female
  Weight: 65 kg

DRUGS (5)
  1. CIMZIA [Suspect]
     Indication: CROHN'S DISEASE
     Dosage: 400 MG SC
     Route: 058
     Dates: start: 20090216
  2. MERCAPTOPURINE [Concomitant]
  3. LOPERAMIDE HYDROCHLORIDE [Concomitant]
  4. LEXAPRO [Concomitant]
  5. PRILOSEC [Concomitant]

REACTIONS (5)
  - ASTHENIA [None]
  - BLOOD COUNT ABNORMAL [None]
  - BLOOD CREATININE INCREASED [None]
  - DEHYDRATION [None]
  - VOMITING [None]
